FAERS Safety Report 17170188 (Version 1)
Quarter: 2019Q4

REPORT INFORMATION
  Report Type: Spontaneous
  Country: CN (occurrence: CN)
  Receive Date: 20191218
  Receipt Date: 20191218
  Transmission Date: 20200122
  Serious: Yes (Hospitalization)
  Sender: FDA-Public Use
  Company Number: CN-PFIZER INC-2019541802

PATIENT
  Age: 59 Year
  Sex: Female
  Weight: 38.7 kg

DRUGS (2)
  1. VFEND [Suspect]
     Active Substance: VORICONAZOLE
     Indication: PLASMA CELL MYELOMA
     Dosage: 400 MG, 1X/DAY
     Route: 041
     Dates: start: 20191008, end: 20191009
  2. GLUCOSE INJECTION [Concomitant]
     Active Substance: DEXTROSE
     Indication: PLASMA CELL MYELOMA
     Dosage: 250 ML, 1X/DAY
     Route: 041
     Dates: start: 20191008, end: 20191009

REACTIONS (1)
  - Generalised tonic-clonic seizure [Recovering/Resolving]

NARRATIVE: CASE EVENT DATE: 20191008
